FAERS Safety Report 19449264 (Version 2)
Quarter: 2021Q3

REPORT INFORMATION
  Report Type: Report from Study
  Country: CA (occurrence: CA)
  Receive Date: 20210622
  Receipt Date: 20210713
  Transmission Date: 20211014
  Serious: Yes (Hospitalization)
  Sender: FDA-Public Use
  Company Number: NVSC2021CA137472

PATIENT
  Age: 43 Year
  Sex: Male

DRUGS (1)
  1. REVOLADE [Suspect]
     Active Substance: ELTROMBOPAG OLAMINE
     Indication: IMMUNE THROMBOCYTOPENIA
     Dosage: 50 MG, QD
     Route: 048
     Dates: start: 202104, end: 20210525

REACTIONS (3)
  - Portal vein thrombosis [Recovering/Resolving]
  - Pain [Unknown]
  - Mesenteric vein thrombosis [Recovering/Resolving]

NARRATIVE: CASE EVENT DATE: 20210604
